FAERS Safety Report 8979682 (Version 2)
Quarter: 2013Q1

REPORT INFORMATION
  Report Type: Spontaneous
  Country: DE (occurrence: DE)
  Receive Date: 20121221
  Receipt Date: 20130107
  Transmission Date: 20140127
  Serious: Yes (Hospitalization)
  Sender: FDA-Public Use
  Company Number: DE-JNJFOC-20121205374

PATIENT
  Age: 82 Year
  Sex: Female

DRUGS (13)
  1. REOPRO [Suspect]
     Indication: TROPONIN
     Dosage: INFUSION
     Route: 042
     Dates: start: 20121210
  2. REOPRO [Suspect]
     Indication: CARDIAC DISORDER
     Dosage: INFUSION
     Route: 042
     Dates: start: 20121210
  3. REOPRO [Suspect]
     Indication: VENTRICULAR TACHYCARDIA
     Dosage: INFUSION
     Route: 042
     Dates: start: 20121210
  4. SUFENTA [Suspect]
     Indication: PRODUCT USED FOR UNKNOWN INDICATION
     Route: 065
  5. HEPARIN [Suspect]
     Indication: PRODUCT USED FOR UNKNOWN INDICATION
     Route: 065
     Dates: start: 20121210
  6. ARTERENOL [Concomitant]
     Route: 065
  7. CORDAREX [Concomitant]
     Route: 065
  8. MIDAZOLAM [Concomitant]
     Route: 065
  9. PANTOZOL [Concomitant]
     Route: 065
  10. ISCOVER [Concomitant]
     Route: 065
  11. ORCIPRENALINE SULFATE [Concomitant]
     Route: 065
  12. CLEXANE [Concomitant]
     Route: 065
  13. ACETYLSALICYLIC ACID [Concomitant]
     Route: 065

REACTIONS (1)
  - Heparin-induced thrombocytopenia [Not Recovered/Not Resolved]
